FAERS Safety Report 21847018 (Version 9)
Quarter: 2025Q1

REPORT INFORMATION
  Report Type: Spontaneous
  Country: US (occurrence: US)
  Receive Date: 20230111
  Receipt Date: 20250328
  Transmission Date: 20250408
  Serious: Yes (Hospitalization, Other)
  Sender: GLAXOSMITHKLINE
  Company Number: US-GSK-US2023001975

PATIENT

DRUGS (1)
  1. BENLYSTA [Suspect]
     Active Substance: BELIMUMAB
     Indication: Systemic lupus erythematosus
     Dosage: 200 MG, WE
     Dates: start: 2022, end: 202402

REACTIONS (17)
  - Hospitalisation [Unknown]
  - COVID-19 [Unknown]
  - Liver disorder [Unknown]
  - Thrombosis [Unknown]
  - Pulmonary thrombosis [Unknown]
  - Gallbladder operation [Unknown]
  - Cardiac operation [Unknown]
  - Surgery [Unknown]
  - Infection [Unknown]
  - Pain [Not Recovered/Not Resolved]
  - Illness [Unknown]
  - Mobility decreased [Unknown]
  - Decubitus ulcer [Unknown]
  - Visual impairment [Unknown]
  - Herpes zoster [Unknown]
  - Alopecia [Unknown]
  - Product dose omission issue [Unknown]

NARRATIVE: CASE EVENT DATE: 20221225
